FAERS Safety Report 18131716 (Version 1)
Quarter: 2020Q3

REPORT INFORMATION
  Report Type: Spontaneous
  Country: US (occurrence: US)
  Receive Date: 20200810
  Receipt Date: 20200810
  Transmission Date: 20201103
  Serious: Yes (Hospitalization, Other)
  Sender: FDA-Public Use
  Company Number: US-SA-2020SA203518

PATIENT

DRUGS (2)
  1. APIDRA [Suspect]
     Active Substance: INSULIN GLULISINE
     Indication: TYPE 2 DIABETES MELLITUS
     Dosage: UNK
     Route: 065
  2. LANTUS [Suspect]
     Active Substance: INSULIN GLARGINE
     Indication: TYPE 1 DIABETES MELLITUS
     Dosage: UNK
     Route: 065

REACTIONS (10)
  - Sepsis neonatal [Recovered/Resolved]
  - Neonatal respiratory distress [Recovered/Resolved]
  - Jaundice neonatal [Recovered/Resolved]
  - Hypoglycaemia neonatal [Recovered/Resolved]
  - Foetal exposure during pregnancy [Unknown]
  - Neonatal intestinal dilatation [Recovered/Resolved]
  - Dyskinesia neonatal [Recovered/Resolved]
  - Extrapyramidal disorder [Recovered/Resolved]
  - Poor feeding infant [Recovered/Resolved]
  - Transient tachypnoea of the newborn [Recovered/Resolved]
